FAERS Safety Report 20579645 (Version 2)
Quarter: 2022Q1

REPORT INFORMATION
  Report Type: Spontaneous
  Country: AU (occurrence: AU)
  Receive Date: 20220310
  Receipt Date: 20220321
  Transmission Date: 20220423
  Serious: Yes (Other)
  Sender: FDA-Public Use
  Company Number: AU-NAPPMUNDI-GBR-2022-0095769

PATIENT
  Sex: Female

DRUGS (2)
  1. MORPHINE SULFATE [Suspect]
     Active Substance: MORPHINE SULFATE
     Indication: Pain
     Dosage: UNK
     Route: 065
  2. MORPHINE HYDROCHLORIDE [Suspect]
     Active Substance: MORPHINE HYDROCHLORIDE
     Indication: Pain
     Dosage: UNK
     Route: 065

REACTIONS (3)
  - Near death experience [Recovered/Resolved]
  - Loss of consciousness [Recovered/Resolved]
  - Confusional state [Recovered/Resolved]
